FAERS Safety Report 10566399 (Version 4)
Quarter: 2015Q2

REPORT INFORMATION
  Report Type: Spontaneous
  Country: DE (occurrence: DE)
  Receive Date: 20141105
  Receipt Date: 20150527
  Transmission Date: 20150821
  Serious: Yes (Life-Threatening, Hospitalization, Other)
  Sender: FDA-Public Use
  Company Number: DE-ALEXION PHARMACEUTICALS INC-A201404155

PATIENT

DRUGS (4)
  1. SOLIRIS [Suspect]
     Active Substance: ECULIZUMAB
     Indication: OFF LABEL USE
  2. SOLIRIS [Suspect]
     Active Substance: ECULIZUMAB
     Indication: PAROXYSMAL NOCTURNAL HAEMOGLOBINURIA
     Dosage: 300 MG, QW
     Route: 042
     Dates: start: 20090903, end: 201001
  3. PENICILLIN                         /00000901/ [Concomitant]
     Active Substance: PENICILLIN
     Indication: ANTIBIOTIC PROPHYLAXIS
     Dosage: UNK
     Route: 065
     Dates: start: 20131201
  4. SOLIRIS [Suspect]
     Active Substance: ECULIZUMAB
     Indication: COMPLEMENT FACTOR DECREASED
     Dosage: 300 MG, Q2W
     Route: 042
     Dates: start: 201001

REACTIONS (2)
  - Meningococcal sepsis [Recovered/Resolved]
  - Off label use [Unknown]

NARRATIVE: CASE EVENT DATE: 20141021
